FAERS Safety Report 7746924-9 (Version None)
Quarter: 2011Q3

REPORT INFORMATION
  Report Type: 
  Country: None (occurrence: None)
  Receive Date: 20110913
  Receipt Date: 20110830
  Transmission Date: 20111222
  Serious: Yes (Other)
  Sender: FDA-Public Use
  Company Number: PHEH2011US02936

PATIENT
  Sex: Male

DRUGS (8)
  1. DIOVAN [Suspect]
     Dosage: 320 MG, QD
  2. PLAVIX [Concomitant]
     Dosage: UNK UKN, UNK
  3. PRAVASTATIN [Concomitant]
     Dosage: UNK UKN, UNK
  4. ASPIRIN [Concomitant]
     Dosage: UNK UKN, UNK
  5. DOXYCIN [Concomitant]
     Dosage: UNK UKN, UNK
  6. HYDRALAZINE HCL [Concomitant]
     Dosage: UNK UKN, UNK
  7. AVODART [Concomitant]
     Dosage: UNK UKN, UNK
  8. AMLODIPINE [Concomitant]
     Dosage: UNK UKN, UNK

REACTIONS (3)
  - CORONARY ARTERY BYPASS [None]
  - CARDIAC DISORDER [None]
  - TRANSIENT ISCHAEMIC ATTACK [None]
